FAERS Safety Report 4911899-4 (Version None)
Quarter: 2006Q1

REPORT INFORMATION
  Report Type: 
  Country: None (occurrence: None)
  Receive Date: 20060213
  Receipt Date: 20060213
  Transmission Date: 20060701
  Serious: No
  Sender: FDA-Public Use
  Company Number: None

PATIENT
  Sex: Female
  Weight: 89.8122 kg

DRUGS (2)
  1. METFORMIN HCL [Suspect]
  2. AVANDAMET [Suspect]

REACTIONS (3)
  - DYSPEPSIA [None]
  - NAUSEA [None]
  - STOMACH DISCOMFORT [None]
